FAERS Safety Report 19613770 (Version 1)
Quarter: 2021Q3

REPORT INFORMATION
  Report Type: Report from Study
  Country: GB (occurrence: GB)
  Receive Date: 20210727
  Receipt Date: 20210727
  Transmission Date: 20211014
  Serious: Yes (Other)
  Sender: FDA-Public Use
  Company Number: GB-ACCORD-233022

PATIENT
  Age: 36 Year
  Sex: Female

DRUGS (2)
  1. IMRALDI [Suspect]
     Active Substance: ADALIMUMAB
     Indication: RHEUMATOID ARTHRITIS
     Route: 058
     Dates: start: 20201104
  2. METHOTREXATE. [Suspect]
     Active Substance: METHOTREXATE
     Indication: PRODUCT USED FOR UNKNOWN INDICATION
     Route: 065

REACTIONS (21)
  - Ill-defined disorder [Unknown]
  - Depressed mood [Unknown]
  - Drug effect less than expected [Unknown]
  - Musculoskeletal stiffness [Unknown]
  - Mood altered [Unknown]
  - Irritability [Unknown]
  - Rheumatoid arthritis [Unknown]
  - Limb discomfort [Unknown]
  - Walking aid user [Unknown]
  - Anxiety [Unknown]
  - Sleep disorder [Unknown]
  - Hemiplegic migraine [Unknown]
  - Nausea [Unknown]
  - Peripheral swelling [Unknown]
  - Pain [Unknown]
  - Influenza like illness [Unknown]
  - Mobility decreased [Unknown]
  - Decreased appetite [Unknown]
  - Restless legs syndrome [Unknown]
  - Discomfort [Unknown]
  - Fatigue [Unknown]
